FAERS Safety Report 16849813 (Version 4)
Quarter: 2019Q4

REPORT INFORMATION
  Report Type: Spontaneous
  Country: US (occurrence: US)
  Receive Date: 20190925
  Receipt Date: 20191126
  Transmission Date: 20200122
  Serious: No
  Sender: FDA-Public Use
  Company Number: US-UNITED THERAPEUTICS-UNT-2019-015928

PATIENT
  Age: 52 Year
  Sex: Female
  Weight: 114.74 kg

DRUGS (2)
  1. REMODULIN [Suspect]
     Active Substance: TREPROSTINIL
     Indication: PULMONARY ARTERIAL HYPERTENSION
     Dosage: 0.044 ?G/KG, CONTINUING
     Route: 041
     Dates: start: 20180717
  2. REMODULIN [Suspect]
     Active Substance: TREPROSTINIL
     Dosage: UNK UNK, CONTINUING
     Route: 041

REACTIONS (10)
  - Malaise [Unknown]
  - Purulent discharge [Not Recovered/Not Resolved]
  - Injection site pain [Unknown]
  - Blood pressure decreased [Unknown]
  - Injection site discharge [Not Recovered/Not Resolved]
  - Brain natriuretic peptide abnormal [Unknown]
  - Hyperhidrosis [Unknown]
  - Feeling hot [Unknown]
  - Inflammation [Unknown]
  - Pain in extremity [Unknown]

NARRATIVE: CASE EVENT DATE: 2019
